FAERS Safety Report 22941778 (Version 2)
Quarter: 2023Q4

REPORT INFORMATION
  Report Type: Report from Study
  Country: JP (occurrence: JP)
  Receive Date: 20230914
  Receipt Date: 20231122
  Transmission Date: 20240109
  Serious: Yes (Hospitalization, Other)
  Sender: FDA-Public Use
  Company Number: JP-INSMED, INC.-2023-03438-JP

PATIENT
  Age: 79 Year
  Sex: Male

DRUGS (1)
  1. ARIKAYCE [Suspect]
     Active Substance: AMIKACIN
     Indication: Mycobacterium avium complex infection
     Dosage: 590 MILLIGRAM, QD
     Route: 055
     Dates: start: 2023, end: 20230827

REACTIONS (2)
  - Lung disorder [Unknown]
  - Mycobacterium avium complex infection [Unknown]

NARRATIVE: CASE EVENT DATE: 20230828
